FAERS Safety Report 4577217-9 (Version None)
Quarter: 2005Q1

REPORT INFORMATION
  Report Type: 
  Country: None (occurrence: None)
  Receive Date: 20050208
  Receipt Date: 20050202
  Transmission Date: 20050727
  Serious: Yes (Other)
  Sender: FDA-Public Use
  Company Number: 2004-11-1064

PATIENT
  Age: 72 Year
  Sex: Female
  Weight: 71.2147 kg

DRUGS (2)
  1. CLARITIN-D [Suspect]
     Indication: SINUS CONGESTION
     Dosage: 1 TABLET ORAL
     Route: 048
     Dates: start: 19990101, end: 20041116
  2. ISOPTIN [Concomitant]

REACTIONS (2)
  - AGEUSIA [None]
  - ANOSMIA [None]
